FAERS Safety Report 9837604 (Version 5)
Quarter: 2014Q2

REPORT INFORMATION
  Report Type: Spontaneous
  Country: BR (occurrence: BR)
  Receive Date: 20140123
  Receipt Date: 20140502
  Transmission Date: 20141212
  Serious: Yes (Death)
  Sender: FDA-Public Use
  Company Number: BR-PFIZER INC-2013104299

PATIENT
  Age: 65 Year
  Sex: Female
  Weight: 58 kg

DRUGS (5)
  1. SUTENT [Suspect]
     Indication: GASTROINTESTINAL STROMAL TUMOUR
     Dosage: 50 MG (1 CAPSULE), 1X/DAY, CYCLE 4X2
     Route: 048
     Dates: start: 20130322
  2. SUTENT [Suspect]
     Dosage: 37.5 MG (1 TABLET) ONCE A DAY (CYCLE OF 28 TABLETS AND PAUSE 15 DAYS)
  3. RIVOTRIL [Concomitant]
  4. BENICAR [Concomitant]
     Dosage: 1 TABLET DAILY
  5. FORASEQ [Concomitant]

REACTIONS (16)
  - Death [Fatal]
  - Limb discomfort [Unknown]
  - Apathy [Unknown]
  - Hypertension [Unknown]
  - Pain [Unknown]
  - Fatigue [Unknown]
  - Yellow skin [Unknown]
  - Skin discolouration [Unknown]
  - Muscular weakness [Unknown]
  - Oral pain [Unknown]
  - Tongue pigmentation [Unknown]
  - Rash [Unknown]
  - Hypertension [Unknown]
  - Rash [Unknown]
  - Disease progression [Unknown]
  - Gastrointestinal stromal tumour [Unknown]
